FAERS Safety Report 14195437 (Version 1)
Quarter: 2017Q4

REPORT INFORMATION
  Report Type: Spontaneous
  Country: GB (occurrence: GB)
  Receive Date: 20171116
  Receipt Date: 20171116
  Transmission Date: 20180321
  Serious: Yes (Other)
  Sender: FDA-Public Use
  Company Number: GB-SAOL THERAPEUTICS-2017SAO01758

PATIENT
  Sex: Female

DRUGS (1)
  1. LIORESAL [Suspect]
     Active Substance: BACLOFEN
     Dosage: 240 ?G, \DAY
     Route: 037

REACTIONS (2)
  - Implant site extravasation [Unknown]
  - Dural arteriovenous fistula [None]
